FAERS Safety Report 7002823-1 (Version None)
Quarter: 2010Q3

REPORT INFORMATION
  Report Type: 
  Country: None (occurrence: None)
  Receive Date: 20100920
  Receipt Date: 20100913
  Transmission Date: 20110219
  Serious: Yes (Hospitalization)
  Sender: FDA-Public Use
  Company Number: AU-JNJCH-2010021102

PATIENT
  Sex: Male

DRUGS (1)
  1. CODRAL NF COUGH + COLD+FLU DAY/NIGHT [Suspect]
     Indication: PRODUCT USED FOR UNKNOWN INDICATION
     Dosage: TEXT:UNKNOWN
     Route: 048
     Dates: start: 20100101, end: 20100101

REACTIONS (1)
  - DYSURIA [None]
